FAERS Safety Report 5865925-9 (Version None)
Quarter: 2008Q3

REPORT INFORMATION
  Report Type: 
  Country: None (occurrence: None)
  Receive Date: 20080829
  Receipt Date: 20080821
  Transmission Date: 20090109
  Serious: Yes (Hospitalization, Other)
  Sender: FDA-Public Use
  Company Number: US-AMGEN-QUU248322

PATIENT
  Sex: Male
  Weight: 79.5 kg

DRUGS (3)
  1. ENBREL [Suspect]
     Indication: RHEUMATOID ARTHRITIS
     Route: 058
     Dates: start: 20010305
  2. LODINE [Concomitant]
  3. DARVOCET-N 100 [Concomitant]

REACTIONS (5)
  - ARTHRITIS [None]
  - BASAL CELL CARCINOMA [None]
  - ECCHYMOSIS [None]
  - INJECTION SITE IRRITATION [None]
  - PRECANCEROUS SKIN LESION [None]
